FAERS Safety Report 17639696 (Version 2)
Quarter: 2020Q2

REPORT INFORMATION
  Report Type: Spontaneous
  Country: US (occurrence: US)
  Receive Date: 20200407
  Receipt Date: 20200518
  Transmission Date: 20200713
  Serious: No
  Sender: FDA-Public Use
  Company Number: US-ASTRAZENECA-2020SE40059

PATIENT
  Sex: Male
  Weight: 90.7 kg

DRUGS (4)
  1. SYMBICORT [Suspect]
     Active Substance: BUDESONIDE\FORMOTEROL FUMARATE DIHYDRATE
     Indication: LUNG DISORDER
     Dosage: 160/4.5 MCG 2 PUFFS TWICE A DAY
     Route: 055
     Dates: start: 201311
  2. TUDORZA [Concomitant]
     Active Substance: ACLIDINIUM BROMIDE
     Indication: LUNG DISORDER
     Dates: start: 201311
  3. ALBUTUROL [Concomitant]
     Indication: LUNG DISORDER
     Dosage: AS REQUIRED
     Dates: start: 201311
  4. QUEVAR [Concomitant]
     Indication: LUNG DISORDER
     Dates: start: 201712

REACTIONS (6)
  - Dyspnoea [Not Recovered/Not Resolved]
  - Aphonia [Not Recovered/Not Resolved]
  - Hypopnoea [Not Recovered/Not Resolved]
  - Malaise [Not Recovered/Not Resolved]
  - Drug delivery system malfunction [Unknown]
  - Product dose omission [Recovered/Resolved]
